FAERS Safety Report 13672230 (Version 2)
Quarter: 2017Q3

REPORT INFORMATION
  Report Type: Spontaneous
  Country: US (occurrence: US)
  Receive Date: 20170621
  Receipt Date: 20170809
  Transmission Date: 20171127
  Serious: Yes (Other)
  Sender: FDA-Public Use
  Company Number: US-PFIZER INC-2017146982

PATIENT
  Age: 77 Year
  Sex: Male
  Weight: 79.83 kg

DRUGS (12)
  1. DAPSONE. [Concomitant]
     Active Substance: DAPSONE
     Dosage: UNK
  2. VFEND [Suspect]
     Active Substance: VORICONAZOLE
     Indication: PNEUMONIA
     Dosage: 50 MG, 2X/DAY (TAKE 1 TABLET EVERY 12 (TWELVE) HOURS)
     Route: 048
     Dates: start: 20170313
  3. GANCICLOVIR. [Concomitant]
     Active Substance: GANCICLOVIR
     Dosage: UNK
  4. VFEND [Suspect]
     Active Substance: VORICONAZOLE
     Indication: CHRONIC KIDNEY DISEASE
     Dosage: 300 MG, DAILY (1.5 TABLETS DAILY BY MOUTH IN THE EVENING)
     Route: 048
  5. VFEND [Suspect]
     Active Substance: VORICONAZOLE
     Indication: FUNGAL INFECTION
     Dosage: 300 MG, 2X/DAY (TAKE 1 TAB 200 MG + 2 TABS 50 MG)
     Route: 048
  6. PREDNISONE. [Concomitant]
     Active Substance: PREDNISONE
     Dosage: UNK
  7. COUMADIN [Concomitant]
     Active Substance: WARFARIN SODIUM
     Dosage: 1.5 MG, UNK (1.5 MG 3 DAYS PER WEEK)
     Dates: start: 201702
  8. COUMADIN [Concomitant]
     Active Substance: WARFARIN SODIUM
     Indication: ANTICOAGULANT THERAPY
     Dosage: 1 MG, DAILY
  9. PANTOPRAZOLE [Concomitant]
     Active Substance: PANTOPRAZOLE
     Dosage: UNK
  10. ATORVASTATIN [Concomitant]
     Active Substance: ATORVASTATIN
     Dosage: UNK
  11. MIRTAZAPINE. [Concomitant]
     Active Substance: MIRTAZAPINE
     Dosage: UNK
  12. VFEND [Suspect]
     Active Substance: VORICONAZOLE
     Indication: BRONCHOPULMONARY ASPERGILLOSIS
     Dosage: 200 MG, 2X/DAY (TAKE 1 TABLET EVERY 12 (TWELVE) HOURS)
     Route: 048
     Dates: start: 20170330

REACTIONS (4)
  - Off label use [Unknown]
  - Peripheral swelling [Unknown]
  - Thrombosis [Unknown]
  - Weight decreased [Unknown]

NARRATIVE: CASE EVENT DATE: 201705
